FAERS Safety Report 24966404 (Version 1)
Quarter: 2025Q1

REPORT INFORMATION
  Report Type: Spontaneous
  Country: GB (occurrence: GB)
  Receive Date: 20250213
  Receipt Date: 20250213
  Transmission Date: 20250409
  Serious: Yes (Hospitalization)
  Sender: TEVA
  Company Number: GB-MHRA-TPP29956377C10415492YC1738667292160

PATIENT
  Age: 78 Year
  Sex: Female
  Weight: 61 kg

DRUGS (13)
  1. BISOPROLOL [Suspect]
     Active Substance: BISOPROLOL
     Indication: Ill-defined disorder
     Route: 065
     Dates: start: 20241025
  2. DIGOXIN [Concomitant]
     Active Substance: DIGOXIN
     Indication: Ill-defined disorder
     Dosage: TAKE ONE DAILY
     Route: 065
     Dates: start: 20250204
  3. ACETAMINOPHEN [Concomitant]
     Active Substance: ACETAMINOPHEN
     Indication: Ill-defined disorder
     Dosage: TAKE TWO 4 TIMES/DAY
     Route: 065
     Dates: start: 20240730
  4. EPIMAX EXCETRA [Concomitant]
     Indication: Ill-defined disorder
     Route: 065
     Dates: start: 20240730
  5. LANSOPRAZOLE [Concomitant]
     Active Substance: LANSOPRAZOLE
     Indication: Ill-defined disorder
     Dosage: TAKE ONE ONCE DAILY
     Route: 065
     Dates: start: 20240730
  6. BUPRENORPHINE [Concomitant]
     Active Substance: BUPRENORPHINE
     Indication: Ill-defined disorder
     Dosage: APPLY ONE WEEKLY
     Route: 065
     Dates: start: 20240730
  7. PRAVASTATIN [Concomitant]
     Active Substance: PRAVASTATIN
     Indication: Ill-defined disorder
     Route: 065
     Dates: start: 20240730
  8. ACENOCOUMAROL [Concomitant]
     Active Substance: ACENOCOUMAROL
     Indication: Ill-defined disorder
     Route: 065
     Dates: start: 20241018
  9. FERROUS SULFATE [Concomitant]
     Active Substance: FERROUS SULFATE
     Indication: Ill-defined disorder
     Dosage: TAKE ONE ONCE DAILY
     Route: 065
     Dates: start: 20250120, end: 20250120
  10. 3M CAVILON ANTIFUNGAL [Concomitant]
     Active Substance: MICONAZOLE NITRATE
     Indication: Ill-defined disorder
     Route: 065
     Dates: start: 20240730
  11. CETIRIZINE [Concomitant]
     Active Substance: CETIRIZINE HYDROCHLORIDE
     Indication: Ill-defined disorder
     Dosage: TAKE ONE DAILY
     Route: 065
     Dates: start: 20240730
  12. QUININE SULFATE [Concomitant]
     Active Substance: QUININE SULFATE
     Indication: Ill-defined disorder
     Route: 065
     Dates: start: 20240730
  13. FUROSEMIDE [Concomitant]
     Active Substance: FUROSEMIDE
     Indication: Ill-defined disorder
     Dosage: MORNING
     Route: 065
     Dates: start: 20240730

REACTIONS (1)
  - Urticaria [Recovering/Resolving]
